FAERS Safety Report 10549982 (Version 1)
Quarter: 2014Q4

REPORT INFORMATION
  Report Type: Spontaneous
  Country: US (occurrence: None)
  Receive Date: 20141020
  Receipt Date: 20141020
  Transmission Date: 20150529
  Serious: No
  Sender: FDA-Public Use
  Company Number: AEGR000764

PATIENT
  Age: 62 Year
  Sex: Male
  Weight: 89.8 kg

DRUGS (1)
  1. JUXTAPID [Suspect]
     Active Substance: LOMITAPIDE MESYLATE
     Indication: TYPE IIA HYPERLIPIDAEMIA
     Dates: start: 20140314

REACTIONS (3)
  - Abdominal discomfort [None]
  - Fatigue [None]
  - Gastrointestinal disorder [None]

NARRATIVE: CASE EVENT DATE: 201408
